FAERS Safety Report 4810043-1 (Version None)
Quarter: 2005Q4

REPORT INFORMATION
  Report Type: 
  Country: None (occurrence: None)
  Receive Date: 20051024
  Receipt Date: 20051010
  Transmission Date: 20060501
  Serious: Yes (Death, Life-Threatening)
  Sender: FDA-Public Use
  Company Number: CLOF-10116

PATIENT
  Age: 65 Year
  Sex: Male

DRUGS (6)
  1. CLOFARABINE [Suspect]
     Indication: ACUTE MYELOID LEUKAEMIA
     Dosage: 30 MG/M2 QD IV
     Route: 042
     Dates: start: 20051005, end: 20051006
  2. CASPOFUNGIN [Concomitant]
  3. MEROPENIM [Concomitant]
  4. TEICOPLANIN [Concomitant]
  5. FLUCONAZOLE [Concomitant]
  6. ACETAMINOPHEN [Concomitant]

REACTIONS (9)
  - ARTHRALGIA [None]
  - ATRIAL FIBRILLATION [None]
  - CARDIOMEGALY [None]
  - CHEST X-RAY ABNORMAL [None]
  - ERYTHEMA [None]
  - HYPOTENSION [None]
  - INFLAMMATION [None]
  - NEUTROPENIC SEPSIS [None]
  - RENAL IMPAIRMENT [None]
